FAERS Safety Report 4280818-9 (Version None)
Quarter: 2004Q1

REPORT INFORMATION
  Report Type: 
  Country: None (occurrence: None)
  Receive Date: 20040127
  Receipt Date: 20040114
  Transmission Date: 20041129
  Serious: Yes (Death, Hospitalization)
  Sender: FDA-Public Use
  Company Number: 510#5#2003-30642 (003)

PATIENT
  Age: 78 Year
  Sex: Female

DRUGS (17)
  1. GRT10004 (LIDOCAINE) [Suspect]
     Indication: POST HERPETIC NEURALGIA
     Dates: start: 20030920, end: 20031113
  2. GRT10004 (LIDOCAINE) [Suspect]
     Indication: POST HERPETIC NEURALGIA
     Dates: start: 20031113, end: 20031216
  3. GRT10004 (LIDOCAINE) [Suspect]
     Indication: POST HERPETIC NEURALGIA
     Dates: start: 20030103, end: 20040108
  4. AMLODIPINE [Concomitant]
  5. TERBUTALINE SULFATE [Concomitant]
  6. BETAMETHASONE DIPROPIONATE (VETAMETHASONE DIPROPIONATE) [Concomitant]
  7. VITAMIN B () [Concomitant]
  8. MIXTARD HUMAN (INSULIN HUMAN) [Concomitant]
  9. ATORVASTATIN CALCIUM [Concomitant]
  10. ENALAPRIL MALEATE [Concomitant]
  11. FUROSEMIDE [Concomitant]
  12. COMBIVENT [Concomitant]
  13. BECOTIDE (BECLOMETASONE DIPROPIONATE) [Concomitant]
  14. ERYTHROMYCIN [Concomitant]
  15. CEFUROXIME [Concomitant]
  16. PREDNISOLONE [Concomitant]
  17. CO-PROXAMOL (DEXTROPROPOXYPHENE HYDROCHLORIDE, PARACETAMOL) [Concomitant]

REACTIONS (13)
  - ANXIETY [None]
  - ASTHMA [None]
  - BLOOD GLUCOSE INCREASED [None]
  - C-REACTIVE PROTEIN INCREASED [None]
  - CARDIAC FAILURE CONGESTIVE [None]
  - CONFUSIONAL STATE [None]
  - COUGH [None]
  - DYSPNOEA [None]
  - HYPOXIA [None]
  - MYOCARDIAL ISCHAEMIA [None]
  - NEUTROPHILIA [None]
  - PNEUMONIA [None]
  - PYREXIA [None]
